FAERS Safety Report 18494540 (Version 1)
Quarter: 2020Q4

REPORT INFORMATION
  Report Type: Spontaneous
  Country: US (occurrence: US)
  Receive Date: 20201112
  Receipt Date: 20201112
  Transmission Date: 20210114
  Serious: No
  Sender: FDA-Public Use
  Company Number: US-CELGENEUS-USA-20201101844

PATIENT
  Sex: Male

DRUGS (4)
  1. VENCLEXTA [Concomitant]
     Active Substance: VENETOCLAX
     Indication: ACUTE MYELOID LEUKAEMIA
     Dosage: 200 MILLIGRAM (IN THE MORNING)
     Route: 048
     Dates: start: 20201007
  2. VENCLEXTA [Concomitant]
     Active Substance: VENETOCLAX
     Dosage: 400 MILLIGRAM
     Route: 048
     Dates: start: 20201106
  3. IDHIFA [Suspect]
     Active Substance: ENASIDENIB MESYLATE
     Indication: ACUTE MYELOID LEUKAEMIA
     Dosage: 100 MILLIGRAM
     Route: 048
     Dates: start: 20201023
  4. VENCLEXTA [Concomitant]
     Active Substance: VENETOCLAX
     Dosage: 200 MILLIGRAM (IN THE MORNING)
     Route: 048
     Dates: start: 20201023

REACTIONS (3)
  - Blood creatinine increased [Unknown]
  - Dehydration [Unknown]
  - Dizziness [Unknown]

NARRATIVE: CASE EVENT DATE: 2020
